FAERS Safety Report 19134143 (Version 4)
Quarter: 2022Q1

REPORT INFORMATION
  Report Type: Report from Study
  Country: CA (occurrence: CA)
  Receive Date: 20210414
  Receipt Date: 20220214
  Transmission Date: 20220423
  Serious: Yes (Other)
  Sender: FDA-Public Use
  Company Number: CA-PFIZER INC-2021372853

PATIENT
  Age: 58 Year
  Sex: Female
  Weight: 91 kg

DRUGS (28)
  1. RITUXIMAB [Suspect]
     Active Substance: RITUXIMAB
     Indication: Vasculitis
     Dosage: UNK, WEEKLY
     Route: 042
  2. RITUXIMAB [Suspect]
     Active Substance: RITUXIMAB
     Indication: Granulomatosis with polyangiitis
     Dosage: 776 MG, 1 EVERY 1 WEEKS
     Route: 041
  3. RITUXIMAB [Suspect]
     Active Substance: RITUXIMAB
     Dosage: 828 MG, 1 EVERY 1 WEEKS
     Route: 041
  4. RITUXIMAB [Suspect]
     Active Substance: RITUXIMAB
     Dosage: 746 MG, 1 EVERY 1 WEEKS
     Route: 041
  5. RITUXIMAB [Suspect]
     Active Substance: RITUXIMAB
     Dosage: 776 MG, 1 EVERY 1 WEEKS
     Route: 041
  6. RITUXIMAB [Suspect]
     Active Substance: RITUXIMAB
     Dosage: 727.5 MG, 1 EVERY 1 WEEKS
     Route: 041
  7. RITUXIMAB [Suspect]
     Active Substance: RITUXIMAB
     Indication: Vasculitis
     Dosage: 822 MG
     Route: 041
  8. RITUXIMAB [Suspect]
     Active Substance: RITUXIMAB
     Indication: Granulomatosis with polyangiitis
     Dosage: 776 MG, WEEKLY
     Route: 041
  9. RITUXIMAB [Suspect]
     Active Substance: RITUXIMAB
     Dosage: 828 MG, WEEKLY
     Route: 041
  10. RITUXIMAB [Suspect]
     Active Substance: RITUXIMAB
     Dosage: 776 MG, WEEKLY
     Route: 041
  11. RITUXIMAB [Suspect]
     Active Substance: RITUXIMAB
     Dosage: 727.5 MG, WEEKLY
     Route: 041
  12. AMLODIPINE [Concomitant]
     Active Substance: AMLODIPINE BESYLATE
     Dosage: UNK
  13. CYCLOPHOSPHAMIDE [Concomitant]
     Active Substance: CYCLOPHOSPHAMIDE
     Dosage: UNK
  14. DEPO-MEDROL [Concomitant]
     Active Substance: METHYLPREDNISOLONE ACETATE
     Dosage: 80 MG
     Route: 065
  15. DEPO-MEDROL [Concomitant]
     Active Substance: METHYLPREDNISOLONE ACETATE
     Dosage: 1 ML, 1 EVERY 1 DAYS
     Route: 065
  16. INSULIN NOS [Concomitant]
     Active Substance: INSULIN NOS
     Dosage: UNK
  17. PANTOPRAZOLE [Concomitant]
     Active Substance: PANTOPRAZOLE
     Dosage: 40 MG, 1X/DAY
     Route: 065
  18. PREDNISONE [Concomitant]
     Active Substance: PREDNISONE
     Dosage: 1 MG
     Route: 048
  19. PREDNISONE [Concomitant]
     Active Substance: PREDNISONE
     Dosage: 5 MG, 1 EVERY 1 DAYS
     Route: 048
  20. PREDNISONE [Concomitant]
     Active Substance: PREDNISONE
     Dosage: 1 MG, 1 EVERY 1 DAYS
     Route: 048
  21. PREDNISONE [Concomitant]
     Active Substance: PREDNISONE
     Dosage: 0.5 MG, 1 EVERY 1 DAYS
     Route: 048
  22. CYCLOPHOSPHAMIDE [Concomitant]
     Active Substance: CYCLOPHOSPHAMIDE
     Dosage: UNK
  23. SULFATRIM [Concomitant]
     Active Substance: SULFAMETHOXAZOLE\TRIMETHOPRIM
     Dosage: 80 MG, 1X/DAY
     Route: 065
  24. SULFATRIM [Concomitant]
     Active Substance: SULFAMETHOXAZOLE\TRIMETHOPRIM
     Dosage: 800 MG, 1 EVERY 1 DAYS
     Route: 065
  25. SEMAGLUTIDE [Concomitant]
     Active Substance: SEMAGLUTIDE
     Dosage: UNK
  26. PREDNISONE [Concomitant]
     Active Substance: PREDNISONE
     Dosage: 0.5 MG, 1X/DAY
     Route: 048
  27. PREDNISONE [Concomitant]
     Active Substance: PREDNISONE
     Dosage: 5 MG, 1X/DAY
     Route: 048
  28. SEMAGLUTIDE [Concomitant]
     Active Substance: SEMAGLUTIDE
     Dosage: UNK

REACTIONS (21)
  - Blood alkaline phosphatase increased [Unknown]
  - Blood creatinine increased [Unknown]
  - Body surface area increased [Unknown]
  - Bursitis [Unknown]
  - C-reactive protein [Unknown]
  - Cough [Unknown]
  - Creatinine urine decreased [Unknown]
  - Glycosylated haemoglobin increased [Unknown]
  - Myalgia [Unknown]
  - Red cell distribution width increased [Unknown]
  - Sinusitis [Unknown]
  - Total cholesterol/HDL ratio increased [Unknown]
  - Urine abnormality [Unknown]
  - Urine albumin/creatinine ratio increased [Unknown]
  - Urine leukocyte esterase positive [Unknown]
  - Weight increased [Unknown]
  - Blood glucose increased [Unknown]
  - C-reactive protein increased [Unknown]
  - Nasal ulcer [Unknown]
  - Osteoarthritis [Unknown]
  - Pyrexia [Unknown]
